FAERS Safety Report 7285536-0 (Version None)
Quarter: 2011Q1

REPORT INFORMATION
  Report Type: 
  Country: None (occurrence: None)
  Receive Date: 20110210
  Receipt Date: 20101104
  Transmission Date: 20110831
  Serious: No
  Sender: FDA-Public Use
  Company Number: US-BAUSCH-2010BL005094

PATIENT
  Age: 78 Year
  Sex: Female

DRUGS (1)
  1. DORZOLAMIDE HCL AND TIMOLOL MALEATE [Suspect]
     Indication: GLAUCOMA
     Route: 061
     Dates: start: 20100901, end: 20100901

REACTIONS (1)
  - CHEMICAL INJURY [None]
